FAERS Safety Report 12677971 (Version 2)
Quarter: 2016Q3

REPORT INFORMATION
  Report Type: Report from Study
  Country: CO (occurrence: CO)
  Receive Date: 20160823
  Receipt Date: 20160907
  Transmission Date: 20161109
  Serious: Yes (Hospitalization)
  Sender: FDA-Public Use
  Company Number: PHHY2015CO167185

PATIENT
  Age: 34 Year
  Sex: Female
  Weight: 51 kg

DRUGS (3)
  1. REVOLADE [Suspect]
     Active Substance: ELTROMBOPAG
     Indication: IMMUNE THROMBOCYTOPENIC PURPURA
     Dosage: 25 MG, QID
     Route: 048
     Dates: start: 20150327
  2. REVOLADE [Suspect]
     Active Substance: ELTROMBOPAG
     Dosage: UNK
     Route: 048
     Dates: start: 20160831
  3. MESTINON [Concomitant]
     Active Substance: PYRIDOSTIGMINE BROMIDE
     Indication: CHRONIC MYELOID LEUKAEMIA
     Dosage: 60 MG, 6 TIMES A DAY
     Route: 048

REACTIONS (12)
  - Nausea [Unknown]
  - Disease recurrence [Unknown]
  - Platelet count abnormal [Unknown]
  - Pruritus generalised [Unknown]
  - Dysphonia [Unknown]
  - Dizziness [Unknown]
  - Rash [Unknown]
  - Vaginal haemorrhage [Unknown]
  - Headache [Not Recovered/Not Resolved]
  - Cough [Unknown]
  - Dyspnoea [Unknown]
  - Asthenia [Unknown]

NARRATIVE: CASE EVENT DATE: 20151208
